FAERS Safety Report 9614703 (Version 2)
Quarter: 2013Q4

REPORT INFORMATION
  Report Type: Report from Study
  Country: US (occurrence: US)
  Receive Date: 20131011
  Receipt Date: 20131018
  Transmission Date: 20140711
  Serious: Yes (Other)
  Sender: FDA-Public Use
  Company Number: US-ROCHE-1286684

PATIENT
  Sex: 0

DRUGS (2)
  1. BEVACIZUMAB [Suspect]
     Indication: MACULAR OEDEMA
     Route: 050
  2. RANIBIZUMAB [Suspect]
     Indication: MACULAR OEDEMA
     Route: 050

REACTIONS (4)
  - Macular fibrosis [Unknown]
  - Vitreous haemorrhage [Unknown]
  - Drug ineffective [Unknown]
  - Off label use [Unknown]
